FAERS Safety Report 4470166-6 (Version None)
Quarter: 2004Q3

REPORT INFORMATION
  Report Type: 
  Country: None (occurrence: None)
  Receive Date: 20040910
  Receipt Date: 20040701
  Transmission Date: 20050211
  Serious: No
  Sender: FDA-Public Use
  Company Number: 2004-00158

PATIENT
  Age: 85 Year
  Sex: Male

DRUGS (3)
  1. VELCADE [Suspect]
     Indication: MULTIPLE MYELOMA
     Dosage: INTRAVENOUS
     Route: 042
  2. ALLOPURINOL [Concomitant]
  3. NORVASC [Concomitant]

REACTIONS (5)
  - ASTHENIA [None]
  - HYPERAESTHESIA [None]
  - INSOMNIA [None]
  - LIMB DISCOMFORT [None]
  - SENSORY DISTURBANCE [None]
